FAERS Safety Report 16518375 (Version 26)
Quarter: 2021Q3

REPORT INFORMATION
  Report Type: Spontaneous
  Country: US (occurrence: US)
  Receive Date: 20190702
  Receipt Date: 20210720
  Transmission Date: 20211014
  Serious: Yes (Hospitalization, Other)
  Sender: FDA-Public Use
  Company Number: US-PFIZER INC-2019282966

PATIENT
  Age: 70 Year
  Sex: Male
  Weight: 93 kg

DRUGS (15)
  1. TAMSULOSIN [Concomitant]
     Active Substance: TAMSULOSIN
     Indication: PROSTATIC DISORDER
     Dosage: 4 MG, 1X/DAY (BEEN TAKING TWO TO THREE YEARS)
     Route: 048
  2. MONTELUKAST [Concomitant]
     Active Substance: MONTELUKAST SODIUM
     Indication: SINUS DISORDER
     Dosage: 10 MG, 1X/DAY (BEEN TAKING A COUPLE YEARS)
     Route: 048
  3. LYRICA [Suspect]
     Active Substance: PREGABALIN
     Dosage: 200 MG, DAILY [FOUR BY MOUTH EACH DAY]
     Route: 048
  4. METFORMIN [Concomitant]
     Active Substance: METFORMIN HYDROCHLORIDE
     Indication: DIABETES MELLITUS
     Dosage: 850 MG, DAILY [BY MOUTH EACH DAY]
     Route: 048
  5. LYRICA [Suspect]
     Active Substance: PREGABALIN
     Indication: DIABETIC NEUROPATHY
     Dosage: 100 MG, 4X/DAY
     Route: 048
  6. LYRICA [Suspect]
     Active Substance: PREGABALIN
     Indication: NEUROPATHY PERIPHERAL
     Dosage: 150 MG, DAILY (ONE IN THE MORNING, TWO AT NIGHT)
     Route: 048
     Dates: start: 201801, end: 201801
  7. DULOXETINE. [Concomitant]
     Active Substance: DULOXETINE
     Indication: DEPRESSION
     Dosage: 50 MG, DAILY (BEEN TAKING OVER A YEAR AND A HALF)
     Route: 048
  8. LYRICA [Suspect]
     Active Substance: PREGABALIN
     Dosage: 50 MG, 4X/DAY
     Route: 048
  9. LYRICA [Suspect]
     Active Substance: PREGABALIN
     Dosage: 150 MG, 4X/DAY (1 CAPSULE BY MOUTH 4 TIMES DAILY, 30 DAYS, DISP: 120; 1 CAPS QID)
     Route: 048
  10. FINASTERIDE. [Concomitant]
     Active Substance: FINASTERIDE
     Dosage: 5 MG, DAILY
     Route: 048
  11. METOPROLOL. [Concomitant]
     Active Substance: METOPROLOL
     Indication: CARDIAC DISORDER
     Dosage: UNK, DAILY (2.5, 50MG TABLETS BY MOUTH EACH DAY)
  12. PRAVASTATIN. [Concomitant]
     Active Substance: PRAVASTATIN
     Indication: BLOOD CHOLESTEROL ABNORMAL
     Dosage: 80 MG, DAILY (BY MOUTH EACH DAY)
     Route: 048
  13. CLOPIDOGREL [Concomitant]
     Active Substance: CLOPIDOGREL BISULFATE
     Indication: PAIN
     Dosage: 75 MG, 1X/DAY (BEEN TAKING A COUPLE OF YEARS)
     Route: 048
  14. CLOPIDOGREL [Concomitant]
     Active Substance: CLOPIDOGREL BISULFATE
     Dosage: 50 MG, 4X/DAY
     Route: 048
  15. LYRICA [Suspect]
     Active Substance: PREGABALIN
     Indication: DIABETES MELLITUS
     Dosage: 50 MG, 4X/DAY
     Route: 048
     Dates: start: 201801

REACTIONS (11)
  - Cataract [Unknown]
  - Off label use [Unknown]
  - Inappropriate schedule of product administration [Unknown]
  - Haematuria [Recovered/Resolved]
  - Blood pressure increased [Recovered/Resolved]
  - Suicidal ideation [Unknown]
  - Visual impairment [Not Recovered/Not Resolved]
  - Vision blurred [Not Recovered/Not Resolved]
  - Sleep disorder [Unknown]
  - Drug ineffective [Unknown]
  - Lymphoedema [Unknown]

NARRATIVE: CASE EVENT DATE: 2019
